FAERS Safety Report 9094734 (Version 1)
Quarter: 2013Q1

REPORT INFORMATION
  Report Type: Spontaneous
  Country: US (occurrence: US)
  Receive Date: 20130220
  Receipt Date: 20130220
  Transmission Date: 20140127
  Serious: No
  Sender: FDA-Public Use
  Company Number: US-BIOGENIDEC-2013BI013876

PATIENT
  Sex: Female

DRUGS (1)
  1. TYSABRI [Suspect]
     Indication: MULTIPLE SCLEROSIS
     Route: 042
     Dates: start: 20080724

REACTIONS (6)
  - Burning sensation [Recovered/Resolved]
  - Neuropathy peripheral [Recovered/Resolved]
  - Local swelling [Recovered/Resolved]
  - Migraine [Recovered/Resolved]
  - General symptom [Not Recovered/Not Resolved]
  - Headache [Unknown]
